FAERS Safety Report 4348446-4 (Version None)
Quarter: 2004Q1

REPORT INFORMATION
  Report Type: 
  Country: None (occurrence: None)
  Receive Date: 20040325
  Receipt Date: 20031120
  Transmission Date: 20041129
  Serious: No
  Sender: FDA-Public Use
  Company Number: USA031153162

PATIENT
  Age: 54 Year
  Sex: Female

DRUGS (6)
  1. FORTEO [Suspect]
     Indication: OSTEOPOROSIS
     Dates: start: 20031009
  2. PREDNISONE [Concomitant]
  3. POTASSIUM [Concomitant]
  4. FERROUS SULFATE TAB [Concomitant]
  5. RISPERDAL [Concomitant]
  6. PROZAC [Concomitant]

REACTIONS (2)
  - RASH PRURITIC [None]
  - SKIN DISCOLOURATION [None]
